FAERS Safety Report 4622377-4 (Version None)
Quarter: 2005Q1

REPORT INFORMATION
  Report Type: 
  Country: None (occurrence: None)
  Receive Date: 20050328
  Receipt Date: 20050315
  Transmission Date: 20050727
  Serious: No
  Sender: FDA-Public Use
  Company Number: 213216

PATIENT
  Age: 52 Year
  Sex: Female
  Weight: 51 kg

DRUGS (2)
  1. MABTHERA (RITUXIMAB) CONC FOR SOLUTION FOR INFUSION [Suspect]
     Indication: NON-HODGKIN'S LYMPHOMA
     Dates: start: 20050315, end: 20050315
  2. ACETAMINOPHEN [Concomitant]

REACTIONS (8)
  - ANAPHYLACTOID REACTION [None]
  - CHEST PAIN [None]
  - CHILLS [None]
  - FATIGUE [None]
  - INFUSION RELATED REACTION [None]
  - PALLOR [None]
  - PYREXIA [None]
  - TREMOR [None]
